FAERS Safety Report 9684349 (Version 1)
Quarter: 2013Q4

REPORT INFORMATION
  Report Type: Spontaneous
  Country: US (occurrence: US)
  Receive Date: 20131112
  Receipt Date: 20131112
  Transmission Date: 20140711
  Serious: Yes (Other)
  Sender: FDA-Public Use
  Company Number: US-PURDUE-USA-2013-0108379

PATIENT
  Age: 53 Year
  Sex: Male

DRUGS (4)
  1. OXYCONTIN (NDA 22-272) [Suspect]
     Indication: PAIN
     Dosage: 60 MG, BID
     Route: 048
     Dates: start: 2005, end: 2005
  2. OXYCONTIN (NDA 22-272) [Suspect]
     Dosage: 60 MG, QID
     Route: 048
     Dates: start: 2005, end: 2013
  3. OXYCONTIN (NDA 22-272) [Suspect]
     Dosage: 10 MG, TID
     Route: 048
     Dates: start: 201307
  4. PERCOCET                           /00867901/ [Concomitant]
     Indication: BREAKTHROUGH PAIN
     Dosage: 1-2 TABLETS AS NEEDED
     Route: 048
     Dates: start: 1993, end: 201308

REACTIONS (5)
  - Nervous system disorder [Not Recovered/Not Resolved]
  - Head injury [Unknown]
  - Concussion [Unknown]
  - Lethargy [Not Recovered/Not Resolved]
  - Mental impairment [Unknown]
